FAERS Safety Report 5724138-1 (Version None)
Quarter: 2008Q2

REPORT INFORMATION
  Report Type: 
  Country: None (occurrence: None)
  Receive Date: 20080430
  Receipt Date: 20080423
  Transmission Date: 20081010
  Serious: Yes (Hospitalization, Other)
  Sender: FDA-Public Use
  Company Number: US-BOEHRINGER INGELHEIM GMBH, GERMANY-2008-BP-06424BP

PATIENT
  Sex: Female

DRUGS (1)
  1. FLOMAX [Suspect]
     Indication: URINARY HESITATION
     Route: 048
     Dates: start: 20080301

REACTIONS (5)
  - CONVULSION [None]
  - FALL [None]
  - HEAD INJURY [None]
  - ORTHOSTATIC HYPOTENSION [None]
  - PELVIC FRACTURE [None]
